FAERS Safety Report 21419748 (Version 1)
Quarter: 2022Q4

REPORT INFORMATION
  Report Type: Report from Study
  Country: FR (occurrence: FR)
  Receive Date: 20221006
  Receipt Date: 20221006
  Transmission Date: 20230113
  Serious: Yes (Other)
  Sender: FDA-Public Use
  Company Number: FR-ABBVIE-4134155

PATIENT
  Sex: Female

DRUGS (8)
  1. RISANKIZUMAB [Suspect]
     Active Substance: RISANKIZUMAB
     Indication: Psoriasis
     Route: 058
     Dates: start: 20201019, end: 20201116
  2. RISANKIZUMAB [Suspect]
     Active Substance: RISANKIZUMAB
     Route: 058
     Dates: start: 20201116
  3. phloroglucinol and trimethylphloroglucinol [Concomitant]
     Indication: Gastric disorder
     Dosage: 80 MILLIGRAM
     Route: 048
  4. amoxicilline and acide clavulonique [Concomitant]
     Indication: Stasis dermatitis
     Route: 048
     Dates: start: 20220217, end: 20220224
  5. BETAMETHASONE [Concomitant]
     Active Substance: BETAMETHASONE
     Indication: Stasis dermatitis
     Dosage: 0.05 PERCENT
     Route: 003
     Dates: start: 20220217
  6. OMEPRAZOLE [Concomitant]
     Active Substance: OMEPRAZOLE
     Indication: Gastrooesophageal reflux disease
     Dosage: 20 MILLIGRAM
     Route: 048
     Dates: start: 20210914
  7. BIFONAZOLE [Concomitant]
     Active Substance: BIFONAZOLE
     Indication: Cutaneous T-cell lymphoma
     Dosage: 1 PERCENT
     Route: 003
     Dates: start: 20220217, end: 20220307
  8. BIFONAZOLE [Concomitant]
     Active Substance: BIFONAZOLE
     Indication: Cutaneous T-cell lymphoma
     Dosage: 1 PERCENT
     Route: 003
     Dates: start: 20210914, end: 20220217

REACTIONS (1)
  - Cutaneous T-cell lymphoma [Recovered/Resolved]

NARRATIVE: CASE EVENT DATE: 20210914
